FAERS Safety Report 5469765-4 (Version None)
Quarter: 2007Q3

REPORT INFORMATION
  Report Type: 
  Country: None (occurrence: None)
  Receive Date: 20070927
  Receipt Date: 20070509
  Transmission Date: 20080115
  Serious: No
  Sender: FDA-Public Use
  Company Number: US-AMGEN-US218375

PATIENT
  Age: 49 Year
  Sex: Female

DRUGS (1)
  1. NEUPOGEN [Suspect]
     Route: 065
     Dates: start: 19961129

REACTIONS (2)
  - APHTHOUS STOMATITIS [None]
  - BONE PAIN [None]
